FAERS Safety Report 24541158 (Version 1)
Quarter: 2024Q4

REPORT INFORMATION
  Report Type: Spontaneous
  Country: HU (occurrence: HU)
  Receive Date: 20241023
  Receipt Date: 20241023
  Transmission Date: 20250114
  Serious: Yes (Other)
  Sender: NOVARTIS
  Company Number: HU-002147023-NVSC2024HU206444

PATIENT
  Age: 13 Year

DRUGS (4)
  1. OLOPATADINE [Suspect]
     Active Substance: OLOPATADINE
     Indication: Vernal keratoconjunctivitis
     Dosage: UNK
     Route: 065
  2. TOBRAMYCIN [Suspect]
     Active Substance: TOBRAMYCIN\TOBRAMYCIN SULFATE
     Indication: Vernal keratoconjunctivitis
     Dosage: UNK
     Route: 065
  3. DEXAMETHASONE [Suspect]
     Active Substance: DEXAMETHASONE
     Indication: Vernal keratoconjunctivitis
     Dosage: UNK
     Route: 065
  4. FLUOROMETHOLONE [Concomitant]
     Active Substance: FLUOROMETHOLONE
     Indication: Vernal keratoconjunctivitis
     Dosage: UNK
     Route: 065

REACTIONS (13)
  - Keratoconus [Unknown]
  - Giant papillary conjunctivitis [Recovered/Resolved]
  - Corneal erosion [Recovered/Resolved]
  - Visual acuity reduced [Recovering/Resolving]
  - Cataract cortical [Unknown]
  - Ocular surface disease [Recovered/Resolved]
  - Vernal keratoconjunctivitis [Recovered/Resolved]
  - Conjunctivitis allergic [Unknown]
  - Corneal scar [Recovered/Resolved]
  - Eye pruritus [Unknown]
  - Lacrimation increased [Unknown]
  - Photophobia [Unknown]
  - Symptom recurrence [Unknown]
